FAERS Safety Report 7947914-3 (Version None)
Quarter: 2011Q4

REPORT INFORMATION
  Report Type: 
  Country: None (occurrence: None)
  Receive Date: 20111121
  Receipt Date: 20111111
  Transmission Date: 20120403
  Serious: Yes (Hospitalization)
  Sender: FDA-Public Use
  Company Number: 2011SP022318

PATIENT
  Age: 22 Year
  Sex: Female
  Weight: 50 kg

DRUGS (8)
  1. CITALOPRAM HYDROBROMIDE [Suspect]
     Indication: DEPRESSION
     Dosage: 40 MG;QD;PO, 20 MG;QD;PO, 20 MG;QD;PO
     Route: 048
     Dates: start: 20041101, end: 20070301
  2. CITALOPRAM HYDROBROMIDE [Suspect]
     Indication: ANXIETY
     Dosage: 40 MG;QD;PO, 20 MG;QD;PO, 20 MG;QD;PO
     Route: 048
     Dates: start: 20041101, end: 20070301
  3. CITALOPRAM HYDROBROMIDE [Suspect]
     Indication: DEPRESSION
     Dosage: 40 MG;QD;PO, 20 MG;QD;PO, 20 MG;QD;PO
     Route: 048
     Dates: start: 20070301, end: 20070623
  4. CITALOPRAM HYDROBROMIDE [Suspect]
     Indication: ANXIETY
     Dosage: 40 MG;QD;PO, 20 MG;QD;PO, 20 MG;QD;PO
     Route: 048
     Dates: start: 20070301, end: 20070623
  5. CITALOPRAM HYDROBROMIDE [Suspect]
     Indication: DEPRESSION
     Dosage: 40 MG;QD;PO, 20 MG;QD;PO, 20 MG;QD;PO
     Route: 048
     Dates: start: 20070825, end: 20070913
  6. CITALOPRAM HYDROBROMIDE [Suspect]
     Indication: ANXIETY
     Dosage: 40 MG;QD;PO, 20 MG;QD;PO, 20 MG;QD;PO
     Route: 048
     Dates: start: 20070825, end: 20070913
  7. DESOGESTREL AND ETHINYL ESTRADIOL [Suspect]
     Indication: CONTRACEPTION
     Dosage: PO
     Route: 048
     Dates: start: 20070722, end: 20070907
  8. DESOGESTREL AND ETHINYL ESTRADIOL [Suspect]
     Indication: CONTRACEPTION
     Dosage: PO
     Route: 048
     Dates: start: 20070425, end: 20070623

REACTIONS (1)
  - HEPATITIS TOXIC [None]
